FAERS Safety Report 25964931 (Version 1)
Quarter: 2025Q4

REPORT INFORMATION
  Report Type: Spontaneous
  Country: CN (occurrence: CN)
  Receive Date: 20251027
  Receipt Date: 20251027
  Transmission Date: 20260118
  Serious: Yes (Other)
  Sender: PURDUE
  Company Number: CN-NAPPMUNDI-GBR-2025-0129857

PATIENT
  Age: 67 Year
  Sex: Male
  Weight: 45 kg

DRUGS (1)
  1. OXYCONTIN [Suspect]
     Active Substance: OXYCODONE HYDROCHLORIDE
     Indication: Cancer pain
     Dosage: 20 MILLIGRAM, BID
     Route: 048
     Dates: start: 20251001, end: 20251002

REACTIONS (6)
  - Abdominal discomfort [Recovering/Resolving]
  - Nausea [Recovering/Resolving]
  - Tachypnoea [Recovering/Resolving]
  - Vomiting [Recovering/Resolving]
  - Abdominal distension [Recovering/Resolving]
  - Decreased appetite [Recovering/Resolving]

NARRATIVE: CASE EVENT DATE: 20251001
